FAERS Safety Report 11915709 (Version 1)
Quarter: 2016Q1

REPORT INFORMATION
  Report Type: Spontaneous
  Country: US (occurrence: None)
  Receive Date: 20160113
  Receipt Date: 20160113
  Transmission Date: 20160526
  Serious: No
  Sender: FDA-Public Use
  Company Number: None

PATIENT
  Age: 56 Year
  Sex: Female
  Weight: 127 kg

DRUGS (9)
  1. SIMVASTATIN. [Concomitant]
     Active Substance: SIMVASTATIN
  2. LORAZEPAM. [Concomitant]
     Active Substance: LORAZEPAM
  3. MULTIPLE VITAMINS [Concomitant]
     Active Substance: VITAMINS
  4. VALPROIC ACID. [Concomitant]
     Active Substance: VALPROIC ACID
  5. CLOZAPINE. [Suspect]
     Active Substance: CLOZAPINE
     Indication: PSYCHOTIC DISORDER
     Dosage: 25-225 MG PER DAY ORAL
     Route: 048
     Dates: start: 20151202
  6. METFORMIN [Concomitant]
     Active Substance: METFORMIN HYDROCHLORIDE
  7. BENZTROPINE [Concomitant]
     Active Substance: BENZTROPINE
  8. HALOPERIDOL. [Concomitant]
     Active Substance: HALOPERIDOL
  9. NICOTINE. [Concomitant]
     Active Substance: NICOTINE

REACTIONS (1)
  - Granulocytes abnormal [None]

NARRATIVE: CASE EVENT DATE: 20151202
